FAERS Safety Report 16121982 (Version 2)
Quarter: 2019Q3

REPORT INFORMATION
  Report Type: Spontaneous
  Country: US (occurrence: US)
  Receive Date: 20190327
  Receipt Date: 20190917
  Transmission Date: 20191004
  Serious: No
  Sender: FDA-Public Use
  Company Number: US-PFIZER INC-2019126838

PATIENT
  Sex: Male

DRUGS (1)
  1. FLAGYL [Suspect]
     Active Substance: METRONIDAZOLE\METRONIDAZOLE HYDROCHLORIDE
     Dosage: UNK

REACTIONS (4)
  - Urticaria [Unknown]
  - Pruritus [Unknown]
  - Palpitations [Unknown]
  - Drug hypersensitivity [Unknown]
